FAERS Safety Report 24417947 (Version 4)
Quarter: 2024Q4

REPORT INFORMATION
  Report Type: Spontaneous
  Country: DE (occurrence: DE)
  Receive Date: 20241009
  Receipt Date: 20241108
  Transmission Date: 20250115
  Serious: Yes (Other)
  Sender: SANDOZ
  Company Number: DE-ROCHE-10000091036

PATIENT
  Age: 69 Year
  Sex: Female
  Weight: 76.3 kg

DRUGS (32)
  1. CYCLOPHOSPHAMIDE [Suspect]
     Active Substance: CYCLOPHOSPHAMIDE
     Indication: Diffuse large B-cell lymphoma
     Dosage: START DATE OF MOST RECENT DOSE OF STUDY DRUG PRIOR TO AE 17-SEP-2024
     Route: 042
     Dates: start: 20240516
  2. DOXORUBICIN [Suspect]
     Active Substance: DOXORUBICIN
     Indication: Diffuse large B-cell lymphoma
     Dosage: START DATE OF MOST RECENT DOSE OF STUDY DRUG PRIOR TO AE 17-SEP-2024
     Route: 042
     Dates: start: 20240516
  3. GLOFITAMAB [Suspect]
     Active Substance: GLOFITAMAB
     Indication: Diffuse large B-cell lymphoma
     Dosage: START DATE OF MOST RECENT DOSE OF STUDY DRUG PRIOR TO AE 15-AUG-2024
     Route: 042
     Dates: start: 20240613
  4. PREDNISONE [Suspect]
     Active Substance: PREDNISONE
     Indication: Diffuse large B-cell lymphoma
     Dosage: START DATE OF MOST RECENT DOSE OF STUDY DRUG PRIOR TO AE 21-SEP-2024
     Route: 048
     Dates: start: 20240516
  5. POLATUZUMAB VEDOTIN [Suspect]
     Active Substance: POLATUZUMAB VEDOTIN
     Indication: Diffuse large B-cell lymphoma
     Dosage: START DATE OF MOST RECENT DOSE OF STUDY DRUG PRIOR TO AE 17-SEP-2024
     Route: 042
     Dates: start: 20240517
  6. RITUXIMAB [Suspect]
     Active Substance: RITUXIMAB
     Indication: Diffuse large B-cell lymphoma
     Dosage: START DATE OF MOST RECENT DOSE OF STUDY DRUG PRIOR TO AE 17-SEP-2024
     Route: 042
     Dates: start: 20240516
  7. ALLOPURINOL [Concomitant]
     Active Substance: ALLOPURINOL
     Indication: Prophylaxis
     Dosage: GIVEN FOR PROPHYLAXIS IS YES
     Route: 048
  8. COVID-19 vaccine [Concomitant]
     Indication: Product used for unknown indication
     Dosage: UNK
     Route: 065
     Dates: start: 20221126
  9. COVID-19 vaccine [Concomitant]
     Dosage: UNK
     Route: 065
     Dates: start: 20221126
  10. CANDESARTAN [Concomitant]
     Active Substance: CANDESARTAN
     Indication: Hypertension
     Dosage: 12.000MG
     Route: 048
  11. CANDESARTAN [Concomitant]
     Active Substance: CANDESARTAN
     Dosage: 8.000MG
     Route: 048
     Dates: start: 20240517
  12. CANDESARTAN [Concomitant]
     Active Substance: CANDESARTAN
     Dosage: 8.000MG
     Route: 048
     Dates: start: 20240517
  13. CINACALCET [Concomitant]
     Active Substance: CINACALCET
     Indication: Hyperparathyroidism
     Dosage: 30 MG, QD
     Route: 048
     Dates: start: 20240815
  14. ENOXAPARIN SODIUM [Concomitant]
     Active Substance: ENOXAPARIN SODIUM
     Dosage: 40.000MG QD
     Route: 058
     Dates: start: 20240925, end: 20240929
  15. ENOXAPARIN SODIUM [Concomitant]
     Active Substance: ENOXAPARIN SODIUM
     Indication: Product used for unknown indication
     Dosage: 40 MG
     Route: 065
     Dates: start: 20240925, end: 20240929
  16. CODEINE [Concomitant]
     Active Substance: CODEINE
     Indication: Cough
     Dosage: 4 MG
     Route: 042
     Dates: start: 20240924, end: 20240929
  17. CODEINE [Concomitant]
     Active Substance: CODEINE
     Indication: Product used for unknown indication
     Dosage: DOSE: 20 GTT
     Route: 048
     Dates: start: 20240827
  18. COTRIM [Concomitant]
     Active Substance: SULFAMETHOXAZOLE\TRIMETHOPRIM
     Indication: Product used for unknown indication
     Dosage: DOSE: 20 GTT
     Route: 048
     Dates: start: 20240902
  19. Flutide [Concomitant]
     Indication: Bronchitis chronic
     Dosage: 250.000UG
     Route: 055
  20. NEULASTA [Concomitant]
     Active Substance: PEGFILGRASTIM
     Indication: Product used for unknown indication
     Dosage: 6 MG, Q3W
     Route: 058
     Dates: start: 20240516
  21. ONDANSETRON [Concomitant]
     Active Substance: ONDANSETRON
     Dosage: 4.000MG
     Route: 042
     Dates: start: 20240924, end: 20240929
  22. ONDANSETRON [Concomitant]
     Active Substance: ONDANSETRON
     Indication: Product used for unknown indication
     Dosage: 8 MG
     Route: 048
     Dates: start: 20240513
  23. PANTOPRAZOLE SODIUM [Concomitant]
     Active Substance: PANTOPRAZOLE SODIUM
     Indication: Product used for unknown indication
     Dosage: 40.000MG QD
     Route: 048
  24. PANTOPRAZOLE SODIUM [Concomitant]
     Active Substance: PANTOPRAZOLE SODIUM
     Indication: Gastrooesophageal reflux disease
  25. ACETAMINOPHEN [Concomitant]
     Active Substance: ACETAMINOPHEN
     Indication: Product used for unknown indication
     Dosage: 1000 MG
     Route: 048
     Dates: start: 20240917, end: 20240917
  26. CLEMASTINE FUMARATE [Concomitant]
     Active Substance: CLEMASTINE FUMARATE
     Dosage: 2.000MG QD
     Route: 042
     Dates: start: 20240917, end: 20240917
  27. CLEMASTINE FUMARATE [Concomitant]
     Active Substance: CLEMASTINE FUMARATE
     Indication: Product used for unknown indication
     Dosage: 960 MG
     Route: 048
     Dates: start: 20240902
  28. TORSEMIDE [Concomitant]
     Active Substance: TORSEMIDE
     Indication: Hypertension
     Dosage: 5.000MG QD
     Route: 048
     Dates: start: 20240808
  29. VALACYCLOVIR HYDROCHLORIDE [Concomitant]
     Active Substance: VALACYCLOVIR HYDROCHLORIDE
     Indication: Prophylaxis
     Dosage: GIVEN FOR PROPHYLAXIS IS YES
     Route: 048
     Dates: start: 20240516
  30. XIPAMIDE [Concomitant]
     Active Substance: XIPAMIDE
     Indication: Hypertension
     Dosage: 10.000MG QD
     Route: 048
     Dates: start: 20240524
  31. XIPAMIDE [Concomitant]
     Active Substance: XIPAMIDE
     Dosage: 10.000MG QD
     Route: 048
     Dates: start: 20240523
  32. XIPAMIDE [Concomitant]
     Active Substance: XIPAMIDE
     Dosage: 10.000MG QD
     Route: 048
     Dates: start: 20240523

REACTIONS (1)
  - Febrile neutropenia [Recovered/Resolved]

NARRATIVE: CASE EVENT DATE: 20240924
